FAERS Safety Report 13720930 (Version 1)
Quarter: 2017Q3

REPORT INFORMATION
  Report Type: Spontaneous
  Country: US (occurrence: US)
  Receive Date: 20170705
  Receipt Date: 20170705
  Transmission Date: 20171127
  Serious: Yes (Life-Threatening, Disabling)
  Sender: FDA-Public Use
  Company Number: None

PATIENT
  Age: 45 Year
  Sex: Female
  Weight: 101.2 kg

DRUGS (11)
  1. PREGNENOLONE [Concomitant]
     Active Substance: PREGNENOLONE
  2. ZOFRAN [Concomitant]
     Active Substance: ONDANSETRON HYDROCHLORIDE
  3. THIAMINE. [Concomitant]
     Active Substance: THIAMINE
  4. VITAMIN B12 [Concomitant]
     Active Substance: CYANOCOBALAMIN
  5. CYMBALTA [Suspect]
     Active Substance: DULOXETINE HYDROCHLORIDE
     Indication: FIBROMYALGIA
     Dosage: ?          OTHER STRENGTH:MG;QUANTITY:1 CAPSULE(S);?
     Route: 048
     Dates: start: 20151020, end: 20161107
  6. VITAMIN D [Concomitant]
     Active Substance: CHOLECALCIFEROL
  7. LYRICA [Concomitant]
     Active Substance: PREGABALIN
  8. NATURE-THROID [Concomitant]
     Active Substance: THYROID, PORCINE
  9. CYMBALTA [Suspect]
     Active Substance: DULOXETINE HYDROCHLORIDE
     Indication: NEUROPATHY PERIPHERAL
     Dosage: ?          OTHER STRENGTH:MG;QUANTITY:1 CAPSULE(S);?
     Route: 048
     Dates: start: 20151020, end: 20161107
  10. DHEA [Concomitant]
     Active Substance: PRASTERONE
  11. ULTRAM [Concomitant]
     Active Substance: TRAMADOL HYDROCHLORIDE

REACTIONS (17)
  - Vomiting [None]
  - Pain [None]
  - Paraesthesia [None]
  - Loss of personal independence in daily activities [None]
  - Amnesia [None]
  - Impaired work ability [None]
  - Depression [None]
  - Dysstasia [None]
  - Therapy cessation [None]
  - Pain of skin [None]
  - Dizziness [None]
  - Mobility decreased [None]
  - Nausea [None]
  - Feeding disorder [None]
  - Suicidal ideation [None]
  - Tachyphrenia [None]
  - Speech disorder [None]

NARRATIVE: CASE EVENT DATE: 20161105
